FAERS Safety Report 14841073 (Version 5)
Quarter: 2019Q3

REPORT INFORMATION
  Report Type: Report from Study
  Country: None (occurrence: BR)
  Receive Date: 20180503
  Receipt Date: 20190807
  Transmission Date: 20191004
  Serious: Yes (Disabling, Other)
  Sender: FDA-Public Use
  Company Number: BR-ABBVIE-18K-020-2245543-00

PATIENT
  Age: 56 Year
  Sex: Female
  Weight: 78 kg

DRUGS (9)
  1. METHOTREXATE. [Suspect]
     Active Substance: METHOTREXATE
     Indication: ARTHRITIS
     Route: 065
  2. CALCIMED D3 [Concomitant]
     Active Substance: CALCIUM CARBONATE\CHOLECALCIFEROL
     Indication: BLOOD CALCIUM DECREASED
  3. HUMIRA [Suspect]
     Active Substance: ADALIMUMAB
     Indication: RHEUMATOID ARTHRITIS
     Route: 058
     Dates: start: 20120514
  4. CARBAMAZEPINE. [Concomitant]
     Active Substance: CARBAMAZEPINE
     Indication: PRODUCT USED FOR UNKNOWN INDICATION
  5. FLUOXETINE [Concomitant]
     Active Substance: FLUOXETINE HYDROCHLORIDE
     Indication: PRODUCT USED FOR UNKNOWN INDICATION
  6. RISPERIDONE. [Concomitant]
     Active Substance: RISPERIDONE
     Indication: PRODUCT USED FOR UNKNOWN INDICATION
  7. FOLIC ACID. [Concomitant]
     Active Substance: FOLIC ACID
     Indication: ARTHRITIS
  8. CALCIUM [Concomitant]
     Active Substance: CALCIUM
     Indication: ARTHRITIS
  9. METHOTREXATE. [Suspect]
     Active Substance: METHOTREXATE
     Route: 065

REACTIONS (33)
  - Body height decreased [Unknown]
  - Memory impairment [Unknown]
  - Limb injury [Unknown]
  - Joint injury [Recovering/Resolving]
  - Foot fracture [Not Recovered/Not Resolved]
  - Mobility decreased [Unknown]
  - Medical device site injury [Recovering/Resolving]
  - Groin pain [Recovering/Resolving]
  - Arthropathy [Unknown]
  - Arthralgia [Unknown]
  - Feeling hot [Recovered/Resolved with Sequelae]
  - Fall [Unknown]
  - Limb injury [Recovering/Resolving]
  - Feeling hot [Recovering/Resolving]
  - Exostosis [Unknown]
  - Scar [Unknown]
  - Foot fracture [Not Recovered/Not Resolved]
  - Fall [Recovered/Resolved]
  - Pain in extremity [Recovering/Resolving]
  - Gait disturbance [Not Recovered/Not Resolved]
  - Asthenia [Recovering/Resolving]
  - Gait inability [Recovered/Resolved]
  - Balance disorder [Recovering/Resolving]
  - Joint instability [Unknown]
  - Fall [Recovered/Resolved]
  - Skin discolouration [Unknown]
  - Weight increased [Unknown]
  - Calcium deficiency [Unknown]
  - Gait disturbance [Unknown]
  - Ligament sprain [Unknown]
  - Contusion [Unknown]
  - Arthralgia [Recovered/Resolved]
  - Arthralgia [Recovered/Resolved]

NARRATIVE: CASE EVENT DATE: 201710
